FAERS Safety Report 4594783-8 (Version None)
Quarter: 2005Q1

REPORT INFORMATION
  Report Type: 
  Country: None (occurrence: None)
  Receive Date: 20050223
  Receipt Date: 20050208
  Transmission Date: 20050727
  Serious: Yes (Hospitalization)
  Sender: FDA-Public Use
  Company Number: 8008033

PATIENT
  Age: 36 Year
  Sex: Female

DRUGS (3)
  1. KEPPRA [Suspect]
     Indication: PETIT MAL EPILEPSY
     Dosage: 1000 MG 2/D PO
     Route: 048
     Dates: start: 20041029, end: 20041101
  2. TOPAMAX [Suspect]
     Indication: CONVULSION
     Dosage: PO
     Route: 048
  3. KLONOPIN [Concomitant]

REACTIONS (15)
  - ABNORMAL BEHAVIOUR [None]
  - AGITATION [None]
  - ANOREXIA [None]
  - ASTHENIA [None]
  - COMA [None]
  - DEHYDRATION [None]
  - DIZZINESS [None]
  - HEADACHE [None]
  - INCOHERENT [None]
  - LETHARGY [None]
  - NAUSEA [None]
  - NEPHROLITHIASIS [None]
  - PETIT MAL EPILEPSY [None]
  - REFUSAL OF TREATMENT BY PATIENT [None]
  - URINARY TRACT INFECTION BACTERIAL [None]
